FAERS Safety Report 8816397 (Version 1)
Quarter: 2012Q4

REPORT INFORMATION
  Report Type: Spontaneous
  Country: US (occurrence: None)
  Receive Date: 20120928
  Receipt Date: 20120928
  Transmission Date: 20130627
  Serious: No
  Sender: FDA-Public Use
  Company Number: None

PATIENT
  Age: 62 Year
  Sex: Male
  Weight: 86.18 kg

DRUGS (1)
  1. CARAC [Suspect]
     Indication: SKIN TUMOR
     Dosage: small amount to forehead 1x daily top
     Route: 061
     Dates: start: 20120904, end: 20120910

REACTIONS (10)
  - Abdominal discomfort [None]
  - Myalgia [None]
  - Back pain [None]
  - Dyspepsia [None]
  - Asthenia [None]
  - Arthralgia [None]
  - Bowel movement irregularity [None]
  - Faeces discoloured [None]
  - Mental impairment [None]
  - Irritability [None]
